FAERS Safety Report 23331343 (Version 1)
Quarter: 2023Q4

REPORT INFORMATION
  Report Type: Spontaneous
  Country: US (occurrence: None)
  Receive Date: 20231222
  Receipt Date: 20231222
  Transmission Date: 20240109
  Serious: Yes (Hospitalization)
  Sender: FDA-Public Use
  Company Number: None

PATIENT
  Sex: Male

DRUGS (3)
  1. PULMOZYME [Suspect]
     Active Substance: DORNASE ALFA
     Indication: Cystic fibrosis
     Dosage: 1MG/ML TWICE DAILY NEBULIZED?
     Route: 050
     Dates: start: 201804
  2. TOBRAMYCIN [Concomitant]
  3. CAYSTON [Concomitant]

REACTIONS (1)
  - Hospitalisation [None]
